FAERS Safety Report 5023372-6 (Version None)
Quarter: 2006Q2

REPORT INFORMATION
  Report Type: 
  Country: None (occurrence: None)
  Receive Date: 20060606
  Receipt Date: 20060522
  Transmission Date: 20061013
  Serious: Yes (Other)
  Sender: FDA-Public Use
  Company Number: STI-2006-00152

PATIENT
  Age: 17 Year

DRUGS (1)
  1. 516B CLINDOXYL GEL (CLINDAMYCIN + BENZOYL PEROXIDE) (BENZOYL PEROXIDE [Suspect]
     Dosage: TOPICAL
     Route: 061
     Dates: start: 20060501

REACTIONS (3)
  - APPLICATION SITE URTICARIA [None]
  - FACE OEDEMA [None]
  - SKIN IRRITATION [None]
